FAERS Safety Report 23904546 (Version 1)
Quarter: 2024Q2

REPORT INFORMATION
  Report Type: Spontaneous
  Country: CA (occurrence: CA)
  Receive Date: 20240527
  Receipt Date: 20240527
  Transmission Date: 20240716
  Serious: Yes (Other)
  Sender: FDA-Public Use
  Company Number: CA-BoehringerIngelheim-2024-BI-029917

PATIENT
  Age: 77 Year
  Sex: Female

DRUGS (2)
  1. SPEVIGO [Suspect]
     Active Substance: SPESOLIMAB-SBZO
     Indication: Generalised pustular psoriasis
     Dosage: FIRST DOSE SPESOLIMAB: JUNE 14, 2023?SECOND DOSE SPESOLIMAB: JULY 10, 2023
     Dates: start: 20230614
  2. SPESOLIMAB [Suspect]
     Active Substance: SPESOLIMAB
     Dates: start: 20230710

REACTIONS (1)
  - Hepatocellular carcinoma [Unknown]

NARRATIVE: CASE EVENT DATE: 20230901
